FAERS Safety Report 5577615-0 (Version None)
Quarter: 2007Q4

REPORT INFORMATION
  Report Type: 
  Country: None (occurrence: None)
  Receive Date: 20071231
  Receipt Date: 20071219
  Transmission Date: 20080405
  Serious: Yes (Other)
  Sender: FDA-Public Use
  Company Number: PHNR2007AU02222

PATIENT
  Age: 60 Year
  Sex: Female

DRUGS (1)
  1. ESTRADIOL [Suspect]
     Dosage: 75UG PATCHES
     Route: 062
     Dates: start: 19980101, end: 20071101

REACTIONS (1)
  - BREAST OPERATION [None]
